FAERS Safety Report 7469451-5 (Version None)
Quarter: 2011Q2

REPORT INFORMATION
  Report Type: 
  Country: None (occurrence: None)
  Receive Date: 20110429
  Receipt Date: 20110429
  Transmission Date: 20111010
  Serious: Yes (Other)
  Sender: FDA-Public Use
  Company Number: AU-1185940

PATIENT
  Age: 30 Year
  Sex: Female

DRUGS (3)
  1. AUGMENTIN '125' [Concomitant]
  2. CIPROXIN HC EAR DROPS (CIPROXIN HC) [Suspect]
     Dosage: (AURICULAR (OTIC))
     Route: 001
  3. CEPHALEXIN [Concomitant]

REACTIONS (2)
  - TENDONITIS [None]
  - TENDON RUPTURE [None]
